FAERS Safety Report 4293980-9 (Version None)
Quarter: 2004Q1

REPORT INFORMATION
  Report Type: 
  Country: None (occurrence: None)
  Receive Date: 20040211
  Receipt Date: 20040126
  Transmission Date: 20041129
  Serious: Yes (Disabling)
  Sender: FDA-Public Use
  Company Number: FR_040103483

PATIENT
  Age: 44 Year
  Sex: Female
  Weight: 83 kg

DRUGS (6)
  1. PROZAC [Suspect]
     Indication: DYSTHYMIC DISORDER
     Dosage: 40 MG/DAY
     Dates: start: 20030501
  2. LEVOTHYROXINE SODIUM [Concomitant]
  3. VALIUM [Concomitant]
  4. DILTIAZEM HCL [Concomitant]
  5. DRIPTANE (OXYBUTYNIN HYDROCHLORIDE) [Concomitant]
  6. RELPAX (ELETRIPTAN HYDROBROMIDE) [Concomitant]

REACTIONS (3)
  - AMAUROSIS FUGAX [None]
  - MEMORY IMPAIRMENT [None]
  - TREATMENT NONCOMPLIANCE [None]
